FAERS Safety Report 18223309 (Version 23)
Quarter: 2024Q1

REPORT INFORMATION
  Report Type: Spontaneous
  Country: IN (occurrence: IN)
  Receive Date: 20200902
  Receipt Date: 20240129
  Transmission Date: 20240410
  Serious: Yes (Hospitalization, Other)
  Sender: FDA-Public Use
  Company Number: IN-PFIZER INC-2019119041

PATIENT
  Age: 79 Year
  Sex: Female

DRUGS (26)
  1. PALBOCICLIB [Suspect]
     Active Substance: PALBOCICLIB
     Indication: Breast cancer metastatic
     Dosage: 125 MG, 1X/DAY
     Route: 048
     Dates: start: 20190121
  2. PALBOCICLIB [Suspect]
     Active Substance: PALBOCICLIB
     Dosage: 75 MG, 1X/DAY FOR 21 DAYS IN A MONTH
     Route: 048
     Dates: end: 202210
  3. PALBOCICLIB [Suspect]
     Active Substance: PALBOCICLIB
     Dosage: UNK
     Route: 048
     Dates: end: 20230315
  4. PALBOCICLIB [Suspect]
     Active Substance: PALBOCICLIB
     Dosage: UNK
     Dates: start: 20230407
  5. FEMARA [Suspect]
     Active Substance: LETROZOLE
     Indication: Breast cancer metastatic
     Dosage: 2.5 MG, 1X/DAY
     Dates: start: 201901
  6. DIGOXIN [Concomitant]
     Active Substance: DIGOXIN
     Dosage: UNK
  7. THYROXINE [Concomitant]
     Active Substance: LEVOTHYROXINE
     Dosage: UNK
  8. LINAGLIPTIN [Concomitant]
     Active Substance: LINAGLIPTIN
     Dosage: UNK
  9. NEBIVOLOL HYDROCHLORIDE [Concomitant]
     Active Substance: NEBIVOLOL HYDROCHLORIDE
     Dosage: UNK
  10. ETOFYLLINE\THEOPHYLLINE [Concomitant]
     Active Substance: ETOFYLLINE\THEOPHYLLINE
     Dosage: UNK
  11. CLOPIDOGREL BISULFATE [Concomitant]
     Active Substance: CLOPIDOGREL BISULFATE
     Dosage: UNK
  12. GABANEURON NT [Concomitant]
     Dosage: UNK
  13. ATORVASTATIN [Concomitant]
     Active Substance: ATORVASTATIN
     Dosage: UNK
  14. LIPAGLYN [Concomitant]
     Dosage: UNK
  15. XGEVA [Concomitant]
     Active Substance: DENOSUMAB
     Dosage: 120 MG EVERY 6 MONTH
     Route: 058
  16. PANTOCID-D [Concomitant]
     Dosage: UNK
  17. EPLERENONE [Concomitant]
     Active Substance: EPLERENONE
     Dosage: UNK
  18. ASPIRIN\CLOPIDOGREL BISULFATE [Concomitant]
     Active Substance: ASPIRIN\CLOPIDOGREL BISULFATE
     Dosage: UNK
  19. AZTOR [ATORVASTATIN CALCIUM] [Concomitant]
     Dosage: UNK
  20. BISOPROLOL FUMARATE [Concomitant]
     Active Substance: BISOPROLOL FUMARATE
     Dosage: UNK
  21. ISMO [Concomitant]
     Active Substance: ISOSORBIDE MONONITRATE
     Dosage: UNK
  22. NIKORAN [Concomitant]
     Dosage: UNK
  23. TORSEMIDE [Concomitant]
     Active Substance: TORSEMIDE
     Dosage: UNK
  24. IVABRAD [Concomitant]
     Dosage: UNK
  25. PREGABALIN [Concomitant]
     Active Substance: PREGABALIN
     Dosage: UNK
  26. FELICITA OD [Concomitant]
     Dosage: UNK

REACTIONS (35)
  - Angioplasty [Unknown]
  - Left ventricular failure [Unknown]
  - Myocardial ischaemia [Unknown]
  - Cardiac disorder [Unknown]
  - Food poisoning [Unknown]
  - H1N1 influenza [Unknown]
  - H3N2 influenza [Recovered/Resolved]
  - Nasopharyngitis [Recovered/Resolved]
  - Cough [Recovered/Resolved]
  - Asthenia [Unknown]
  - Oxygen saturation decreased [Unknown]
  - Dyspnoea [Recovered/Resolved]
  - Pyrexia [Recovered/Resolved]
  - Decubitus ulcer [Unknown]
  - Ejection fraction decreased [Unknown]
  - Ventricular hypokinesia [Unknown]
  - Tachypnoea [Unknown]
  - Tachycardia [Unknown]
  - Infection [Unknown]
  - Hyperhidrosis [Unknown]
  - Narcolepsy [Unknown]
  - Chronic obstructive pulmonary disease [Unknown]
  - Heart rate increased [Unknown]
  - Blood pressure increased [Unknown]
  - Arthralgia [Unknown]
  - Full blood count decreased [Unknown]
  - White blood cell count decreased [Unknown]
  - Blood thyroid stimulating hormone decreased [Unknown]
  - Urinary tract infection [Unknown]
  - Drug level increased [Unknown]
  - Blood creatine increased [Unknown]
  - COVID-19 [Unknown]
  - Spondylitis [Unknown]
  - Off label use [Unknown]
  - Product use issue [Unknown]

NARRATIVE: CASE EVENT DATE: 20190101
